FAERS Safety Report 21663726 (Version 1)
Quarter: 2022Q4

REPORT INFORMATION
  Report Type: Spontaneous
  Country: US (occurrence: None)
  Receive Date: 20221129
  Receipt Date: 20221129
  Transmission Date: 20230113
  Serious: Yes (Death)
  Sender: FDA-Public Use
  Company Number: None

PATIENT
  Age: 60 Year
  Sex: Male

DRUGS (22)
  1. SYMTUZA [Suspect]
     Active Substance: COBICISTAT\DARUNAVIR\EMTRICITABINE\TENOFOVIR ALAFENAMIDE
     Indication: HIV infection
     Dosage: FREQUENCY : DAILY;?
     Route: 048
     Dates: end: 20221129
  2. Allopurinol 100mg tablets [Concomitant]
     Dates: end: 20221129
  3. Calcium 500mg with Vit D tablets [Concomitant]
     Dates: end: 20221129
  4. Multivitamin Tablets [Concomitant]
     Dates: end: 20221129
  5. FOLIC ACID [Concomitant]
     Active Substance: FOLIC ACID
     Dates: end: 20221129
  6. GABAPENTIN [Concomitant]
     Active Substance: GABAPENTIN
     Dates: end: 20221129
  7. SF 5000 Plus 1.1% cream [Concomitant]
     Dates: end: 20221129
  8. Vitamin B12 1000mcg sublingual tablets [Concomitant]
     Dates: end: 20221129
  9. Vitamin D3 50mcg tablets [Concomitant]
     Dates: end: 20221129
  10. ALBUTEROL [Concomitant]
     Active Substance: ALBUTEROL
     Dates: end: 20221129
  11. Bupropion XL 150mg tablets [Concomitant]
     Dates: end: 20221129
  12. CETIRIZINE [Concomitant]
     Active Substance: CETIRIZINE HYDROCHLORIDE
     Dates: end: 20221129
  13. Hydroxyzine 25mg tablets [Concomitant]
     Dates: end: 20221129
  14. Ipratropium/Albuterol 0.5/3mg inhalation solution [Concomitant]
     Dates: end: 20221129
  15. Loperamide 2mg capsules [Concomitant]
     Dates: end: 20221129
  16. Selenium Sulfide 2.5% shampoo [Concomitant]
     Dates: end: 20221129
  17. Vitamin B1 100mg tablets [Concomitant]
     Dates: end: 20221129
  18. Albuterol 2.5/3mL inhalation solution [Concomitant]
     Dates: end: 20221129
  19. Benzonatate 100mg capsules [Concomitant]
     Dates: end: 20221129
  20. Acetaminophen 325mg tablets [Concomitant]
     Dates: end: 20221129
  21. Beclomethasone 42mcg nasal spray [Concomitant]
     Dates: end: 20221129
  22. Guaifenesin 100mg/5mL syrup [Concomitant]
     Dates: end: 20221129

REACTIONS (2)
  - Inclusion body myositis [None]
  - Condition aggravated [None]

NARRATIVE: CASE EVENT DATE: 20221129
